FAERS Safety Report 17281211 (Version 1)
Quarter: 2020Q1

REPORT INFORMATION
  Report Type: Spontaneous
  Country: FR (occurrence: FR)
  Receive Date: 20200117
  Receipt Date: 20200117
  Transmission Date: 20200409
  Serious: Yes (Hospitalization)
  Sender: FDA-Public Use
  Company Number: FR-TEVA-2020-FR-1168323

PATIENT
  Age: 27 Year
  Sex: Male

DRUGS (5)
  1. ALPRAZOLAM. [Concomitant]
     Active Substance: ALPRAZOLAM
     Indication: TOXICITY TO VARIOUS AGENTS
     Route: 048
     Dates: start: 20170213, end: 20170213
  2. ANDROCUR [Suspect]
     Active Substance: CYPROTERONE ACETATE
     Indication: TOXICITY TO VARIOUS AGENTS
     Dosage: 30 DOSAGE FORMS 1 DAYS
     Route: 048
     Dates: start: 20170213, end: 20170213
  3. ESTRADIOL. [Concomitant]
     Active Substance: ESTRADIOL
     Indication: HORMONE THERAPY
     Route: 003
     Dates: end: 20170213
  4. LORATADINE. [Suspect]
     Active Substance: LORATADINE
     Indication: TOXICITY TO VARIOUS AGENTS
     Dosage: 6 DOSAGE FORMS 1 DAYS
     Route: 048
     Dates: start: 20170213, end: 20170213
  5. BI MISSILOR [Suspect]
     Active Substance: METRONIDAZOLE\SPIRAMYCIN
     Indication: TOXICITY TO VARIOUS AGENTS
     Dosage: 12 DOSAGE FORMS 1 DAYS
     Route: 048
     Dates: start: 20170213, end: 20170213

REACTIONS (2)
  - Hepatocellular injury [Recovered/Resolved]
  - Hepatitis [Recovered/Resolved]

NARRATIVE: CASE EVENT DATE: 20170214
